FAERS Safety Report 6854945-3 (Version None)
Quarter: 2010Q3

REPORT INFORMATION
  Report Type: 
  Country: None (occurrence: None)
  Receive Date: 20100717
  Receipt Date: 20080312
  Transmission Date: 20110219
  Serious: No
  Sender: FDA-Public Use
  Company Number: US-PFIZER INC-2007107972

PATIENT
  Sex: Female

DRUGS (7)
  1. CHANTIX [Suspect]
     Indication: SMOKING CESSATION THERAPY
     Route: 048
     Dates: start: 20071220
  2. LOXAPINE [Concomitant]
     Route: 048
  3. SEROQUEL [Concomitant]
     Route: 048
  4. CELEXA [Concomitant]
     Route: 048
  5. SYNTHROID [Concomitant]
     Route: 048
  6. ACETYLSALICYLIC ACID [Concomitant]
     Route: 048
  7. DARVOCET [Concomitant]
     Indication: ARTHRALGIA
     Route: 048

REACTIONS (2)
  - ANXIETY [None]
  - TOBACCO USER [None]
